FAERS Safety Report 19398009 (Version 5)
Quarter: 2021Q4

REPORT INFORMATION
  Report Type: Report from Study
  Country: DE (occurrence: DE)
  Receive Date: 20210610
  Receipt Date: 20211231
  Transmission Date: 20220303
  Serious: Yes (Hospitalization)
  Sender: FDA-Public Use
  Company Number: NVSC2021DE127057

PATIENT
  Age: 68 Year
  Sex: Male
  Weight: 87 kg

DRUGS (4)
  1. DABRAFENIB [Suspect]
     Active Substance: DABRAFENIB
     Indication: Malignant melanoma
     Dosage: UNK
     Route: 065
     Dates: start: 20200513, end: 20210601
  2. DABRAFENIB [Suspect]
     Active Substance: DABRAFENIB
     Dosage: 150 MG, BID (75 MG (2-0-2)
     Route: 048
  3. TRAMETINIB [Suspect]
     Active Substance: TRAMETINIB
     Indication: Malignant melanoma
     Dosage: UNK
     Route: 065
     Dates: start: 20200513, end: 20210601
  4. TRAMETINIB [Suspect]
     Active Substance: TRAMETINIB
     Dosage: 2 MG
     Route: 048

REACTIONS (3)
  - Dermatitis atopic [Recovering/Resolving]
  - Prurigo [Recovering/Resolving]
  - Eczema [Not Recovered/Not Resolved]

NARRATIVE: CASE EVENT DATE: 20210527
